FAERS Safety Report 16609313 (Version 2)
Quarter: 2019Q3

REPORT INFORMATION
  Report Type: Report from Study
  Country: None (occurrence: US)
  Receive Date: 20190722
  Receipt Date: 20190917
  Transmission Date: 20191004
  Serious: Yes (Hospitalization, Other)
  Sender: FDA-Public Use
  Company Number: US-INSMED, INC.-US-INS-19-02194

PATIENT
  Age: 75 Year
  Sex: Male
  Weight: 71.28 kg

DRUGS (3)
  1. ARIKAYCE [Suspect]
     Active Substance: AMIKACIN
     Indication: MYCOBACTERIUM AVIUM COMPLEX INFECTION
     Route: 055
     Dates: start: 20190620, end: 20190627
  2. LAMIRA NEBULIZER SYSTEM [Suspect]
     Active Substance: DEVICE
  3. ARIKAYCE [Suspect]
     Active Substance: AMIKACIN
     Route: 055
     Dates: start: 20190630

REACTIONS (12)
  - Anaemia [Recovered/Resolved]
  - Haemorrhoids [Unknown]
  - Chills [Unknown]
  - Peripheral swelling [Unknown]
  - Dyspnoea [Unknown]
  - Asthenia [Unknown]
  - Product dose omission [Unknown]
  - Transfusion [Recovered/Resolved]
  - Dry eye [Unknown]
  - Renal impairment [Unknown]
  - Diarrhoea [Unknown]
  - Neoplasm malignant [Unknown]

NARRATIVE: CASE EVENT DATE: 2019
